FAERS Safety Report 18767097 (Version 1)
Quarter: 2021Q1

REPORT INFORMATION
  Report Type: Spontaneous
  Country: CA (occurrence: CA)
  Receive Date: 20210121
  Receipt Date: 20210121
  Transmission Date: 20210419
  Serious: Yes (Hospitalization)
  Sender: FDA-Public Use
  Company Number: CA-SUN PHARMACEUTICAL INDUSTRIES LTD-2021R1-276371

PATIENT
  Age: 93 Year
  Sex: Male

DRUGS (4)
  1. TAMSULOSIN [Suspect]
     Active Substance: TAMSULOSIN
     Indication: URINARY RETENTION
     Dosage: 0.4 MILLIGRAM, DAILY
     Route: 065
  2. HYDROMORPHONE [Suspect]
     Active Substance: HYDROMORPHONE
     Indication: CONSTIPATION
     Dosage: 0.5 MILLIGRAM, QID
     Route: 048
  3. CYCLOBENZAPRINE. [Suspect]
     Active Substance: CYCLOBENZAPRINE
     Indication: URINARY RETENTION
     Dosage: 5 MILLIGRAM, DAILY
     Route: 065
  4. AMITRIPTYLINE [Suspect]
     Active Substance: AMITRIPTYLINE
     Indication: URINARY RETENTION
     Dosage: UNK
     Route: 065

REACTIONS (7)
  - Confusional state [Unknown]
  - Constipation [Unknown]
  - Orthostatic hypertension [Unknown]
  - Mobility decreased [Unknown]
  - Gait disturbance [Unknown]
  - Fall [Unknown]
  - Autonomic nervous system imbalance [Not Recovered/Not Resolved]
